FAERS Safety Report 6457419-7 (Version None)
Quarter: 2009Q4

REPORT INFORMATION
  Report Type: 
  Country: None (occurrence: None)
  Receive Date: 20091125
  Receipt Date: 20091116
  Transmission Date: 20100525
  Serious: Yes (Other)
  Sender: FDA-Public Use
  Company Number: US-JNJFOC-20091102916

PATIENT
  Sex: Male
  Weight: 109.77 kg

DRUGS (12)
  1. RISPERDAL [Suspect]
     Indication: BIPOLAR I DISORDER
     Route: 048
  2. RISPERDAL CONSTA [Suspect]
     Indication: BIPOLAR I DISORDER
     Route: 030
  3. CRANBERRY EXTRACT [Concomitant]
     Indication: MEDICAL DIET
     Route: 065
  4. INVEGA SUSTENNA [Concomitant]
     Route: 030
  5. INVEGA SUSTENNA [Concomitant]
     Indication: BIPOLAR I DISORDER
     Route: 030
  6. TRICOR [Concomitant]
     Indication: BLOOD CHOLESTEROL
     Route: 065
  7. POTASSIUM CHLORIDE [Concomitant]
     Indication: CARDIAC DISORDER
     Route: 065
  8. FISH OIL [Concomitant]
     Indication: MEDICAL DIET
     Route: 065
  9. CINNAMON [Concomitant]
     Indication: MEDICAL DIET
     Route: 065
  10. SITAGLIPTIN [Concomitant]
     Indication: DIABETES MELLITUS
     Route: 065
  11. CIRCULATORY DRUGS [Concomitant]
     Indication: CARDIOVASCULAR DISORDER
     Route: 065
  12. KLONOPIN [Concomitant]
     Indication: STRESS
     Route: 065

REACTIONS (8)
  - ANGINA PECTORIS [None]
  - ATRIOVENTRICULAR BLOCK [None]
  - BLOOD CHOLESTEROL INCREASED [None]
  - DIABETES MELLITUS [None]
  - HEART RATE IRREGULAR [None]
  - PERIPHERAL VASCULAR DISORDER [None]
  - STRESS [None]
  - URINE OUTPUT INCREASED [None]
